FAERS Safety Report 11552265 (Version 1)
Quarter: 2015Q3

REPORT INFORMATION
  Report Type: Report from Study
  Country: BR (occurrence: BR)
  Receive Date: 20150925
  Receipt Date: 20150925
  Transmission Date: 20151125
  Serious: Yes (Death, Other)
  Sender: FDA-Public Use
  Company Number: PHHY2015BR115439

PATIENT
  Sex: Female
  Weight: 57 kg

DRUGS (1)
  1. EXELON PATCH [Suspect]
     Active Substance: RIVASTIGMINE
     Indication: DEMENTIA WITH LEWY BODIES
     Route: 062

REACTIONS (4)
  - Dementia with Lewy bodies [Unknown]
  - Condition aggravated [Unknown]
  - Drug ineffective [Unknown]
  - Death [Fatal]
